FAERS Safety Report 11500998 (Version 1)
Quarter: 2015Q3

REPORT INFORMATION
  Report Type: Spontaneous
  Country: US (occurrence: US)
  Receive Date: 20150903
  Receipt Date: 20150903
  Transmission Date: 20151125
  Serious: No
  Sender: FDA-Public Use
  Company Number: US-ELI_LILLY_AND_COMPANY-US200901003036

PATIENT
  Age: 66 Year
  Sex: Female

DRUGS (3)
  1. HUMALOG [Suspect]
     Active Substance: INSULIN LISPRO
  2. LANTUS [Concomitant]
     Active Substance: INSULIN GLARGINE
     Indication: TYPE 1 DIABETES MELLITUS
     Dosage: 22 U, DAILY (1/D)
     Dates: start: 1998
  3. LANTUS [Concomitant]
     Active Substance: INSULIN GLARGINE
     Dosage: 22 U, DAILY (1/D)
     Dates: start: 1998

REACTIONS (2)
  - Pruritus generalised [Unknown]
  - Parosmia [Unknown]

NARRATIVE: CASE EVENT DATE: 200812
